FAERS Safety Report 20516421 (Version 3)
Quarter: 2022Q1

REPORT INFORMATION
  Report Type: Spontaneous
  Country: US (occurrence: US)
  Receive Date: 20220225
  Receipt Date: 20220307
  Transmission Date: 20220424
  Serious: No
  Sender: FDA-Public Use
  Company Number: US-AMGEN-USASP2022030113

PATIENT
  Age: 67 Year
  Sex: Female

DRUGS (1)
  1. AIMOVIG [Suspect]
     Active Substance: ERENUMAB-AOOE
     Indication: Migraine
     Dosage: 70 MILLIGRAM, QMO
     Route: 065

REACTIONS (18)
  - Weight decreased [Unknown]
  - Gastrointestinal viral infection [Unknown]
  - Renal disorder [Unknown]
  - Upper-airway cough syndrome [Unknown]
  - Anxiety [Unknown]
  - Depression [Unknown]
  - Panic attack [Unknown]
  - Dysphagia [Unknown]
  - Skin wrinkling [Unknown]
  - Inappropriate schedule of product administration [Unknown]
  - Migraine [Unknown]
  - Hyposmia [Unknown]
  - Chest discomfort [Unknown]
  - Rhinorrhoea [Unknown]
  - Cough [Unknown]
  - Mobility decreased [Unknown]
  - Vision blurred [Unknown]
  - Eye complication associated with device [Unknown]

NARRATIVE: CASE EVENT DATE: 20220210
